FAERS Safety Report 18467984 (Version 3)
Quarter: 2021Q1

REPORT INFORMATION
  Report Type: Spontaneous
  Country: PT (occurrence: PT)
  Receive Date: 20201105
  Receipt Date: 20210104
  Transmission Date: 20210419
  Serious: Yes (Hospitalization, Other)
  Sender: FDA-Public Use
  Company Number: PT-PFIZER INC-2020425068

PATIENT
  Age: 65 Year
  Sex: Female

DRUGS (14)
  1. BRIGATINIB [Concomitant]
     Active Substance: BRIGATINIB
     Dosage: 180 MG, DAILY
  2. NINTEDANIB [Concomitant]
     Active Substance: NINTEDANIB
     Dosage: 200 MG, 2X/DAY
     Dates: start: 20190701
  3. LORLATINIB [Suspect]
     Active Substance: LORLATINIB
     Indication: LUNG ADENOCARCINOMA
     Dosage: UNK
     Dates: start: 20191001
  4. VARGATEF [Suspect]
     Active Substance: NINTEDANIB
     Indication: LUNG ADENOCARCINOMA STAGE IV
     Dosage: 400 MG, 1X/DAY
     Dates: start: 201907
  5. VARGATEF [Suspect]
     Active Substance: NINTEDANIB
     Dosage: 150 MG, FREQ:.5 D;
  6. KEPPRA [Concomitant]
     Active Substance: LEVETIRACETAM
     Dosage: 1000 MG, 2X/DAY
  7. INDAPAMIDE. [Concomitant]
     Active Substance: INDAPAMIDE
     Dosage: 1.5 MG, 1X/DAY
  8. ALPRAZOLAM. [Concomitant]
     Active Substance: ALPRAZOLAM
     Dosage: 0.25 MG, 1X/DAY
  9. BRIGATINIB [Concomitant]
     Active Substance: BRIGATINIB
     Indication: LUNG ADENOCARCINOMA STAGE IV
     Dosage: 90 MG, DAILY
     Dates: start: 20180901, end: 201905
  10. NINTEDANIB [Concomitant]
     Active Substance: NINTEDANIB
     Dosage: 150 UNK
  11. DOCETAXEL. [Concomitant]
     Active Substance: DOCETAXEL
     Dosage: 200 MG, 2X/DAY
     Dates: start: 20190701
  12. DOCETAXEL. [Concomitant]
     Active Substance: DOCETAXEL
     Dosage: 150 MG, 2X/DAY
  13. ALECTINIB. [Suspect]
     Active Substance: ALECTINIB
     Indication: LUNG ADENOCARCINOMA
     Dosage: 600 MG, 2X/DAY
     Dates: start: 20170801
  14. ALECTINIB. [Suspect]
     Active Substance: ALECTINIB
     Dosage: 450 MG, 2X/DAY

REACTIONS (16)
  - Neoplasm progression [Unknown]
  - Ascites [Unknown]
  - Diarrhoea [Unknown]
  - Hepatic lesion [Unknown]
  - Face oedema [Not Recovered/Not Resolved]
  - Nausea [Unknown]
  - Hepatic lesion [Unknown]
  - Alopecia [Unknown]
  - Jaundice [Unknown]
  - Transaminases increased [Unknown]
  - Hepatic function abnormal [Unknown]
  - Encephalopathy [Unknown]
  - Toxic skin eruption [Unknown]
  - Rash [Unknown]
  - Decreased appetite [Unknown]
  - Hypercholesterolaemia [Unknown]

NARRATIVE: CASE EVENT DATE: 201806
